FAERS Safety Report 11265460 (Version 1)
Quarter: 2015Q3

REPORT INFORMATION
  Report Type: Spontaneous
  Country: DE (occurrence: DE)
  Receive Date: 20150713
  Receipt Date: 20150713
  Transmission Date: 20151125
  Serious: Yes (Hospitalization, Other)
  Sender: FDA-Public Use
  Company Number: DE-ACTAVIS-2015-14056

PATIENT
  Age: 48 Year
  Sex: Female

DRUGS (6)
  1. OLANZAPINE (UNKNOWN) [Suspect]
     Active Substance: OLANZAPINE
     Indication: SCHIZOPHRENIA, CATATONIC TYPE
     Dosage: 10 MG, SINGLE
     Route: 065
  2. CLOZAPINE (UNKNOWN) [Suspect]
     Active Substance: CLOZAPINE
     Indication: SCHIZOPHRENIA, CATATONIC TYPE
     Dosage: UNK
     Route: 065
  3. OLANZAPINE (UNKNOWN) [Suspect]
     Active Substance: OLANZAPINE
     Dosage: 10 MG, DAILY
     Route: 065
  4. HALOPERIDOL (UNKNOWN) [Suspect]
     Active Substance: HALOPERIDOL
     Indication: SCHIZOPHRENIA, CATATONIC TYPE
     Dosage: 5 MG, DAILY
     Route: 065
  5. HALOPERIDOL (UNKNOWN) [Suspect]
     Active Substance: HALOPERIDOL
     Dosage: 100 MG, ONCE A MONTH
     Route: 065
  6. LORAZEPAM (UNKNOWN) [Suspect]
     Active Substance: LORAZEPAM
     Indication: SCHIZOPHRENIA, CATATONIC TYPE
     Dosage: 3-4.5 MG PER DAY
     Route: 048

REACTIONS (2)
  - Hypothermia [Recovered/Resolved]
  - Parkinsonism [Recovered/Resolved]
